FAERS Safety Report 9287700 (Version 1)
Quarter: 2013Q2

REPORT INFORMATION
  Report Type: Spontaneous
  Country: US (occurrence: US)
  Receive Date: 20130514
  Receipt Date: 20130514
  Transmission Date: 20140414
  Serious: Yes (Other)
  Sender: FDA-Public Use
  Company Number: US-JNJFOC-20130504068

PATIENT
  Sex: 0

DRUGS (1)
  1. REMICADE [Suspect]
     Indication: COLITIS ULCERATIVE
     Route: 042

REACTIONS (1)
  - Encephalopathy [Unknown]
